FAERS Safety Report 4980656-5 (Version None)
Quarter: 2006Q2

REPORT INFORMATION
  Report Type: 
  Country: None (occurrence: None)
  Receive Date: 20060424
  Receipt Date: 20050314
  Transmission Date: 20061013
  Serious: Yes (Hospitalization)
  Sender: FDA-Public Use
  Company Number: US-MERCK-0503USA02936

PATIENT
  Age: 53 Year
  Sex: Female
  Weight: 71 kg

DRUGS (14)
  1. VIOXX [Suspect]
     Indication: OSTEOARTHRITIS
     Route: 048
     Dates: start: 20010115, end: 20030301
  2. VIOXX [Suspect]
     Route: 048
     Dates: start: 20030701, end: 20040901
  3. VIOXX [Suspect]
     Route: 048
     Dates: start: 20010115, end: 20030301
  4. VIOXX [Suspect]
     Route: 048
     Dates: start: 20030701, end: 20040901
  5. DIOVAN [Concomitant]
     Route: 065
     Dates: start: 19980101
  6. TOPROL-XL [Concomitant]
     Indication: BLOOD PRESSURE
     Route: 065
     Dates: start: 19980101
  7. PLAVIX [Concomitant]
     Indication: STENT PLACEMENT
     Route: 065
     Dates: start: 19980101, end: 20050101
  8. ISOSORBIDE [Concomitant]
     Route: 065
  9. PAXIL [Concomitant]
     Route: 065
  10. NEXIUM [Concomitant]
     Route: 065
  11. ZOCOR [Concomitant]
     Route: 048
  12. ESTRATEST [Concomitant]
     Route: 065
  13. ZYRTEC [Concomitant]
     Route: 065
  14. VITAMINS (UNSPECIFIED) [Concomitant]
     Route: 065

REACTIONS (16)
  - ASTHENIA [None]
  - BRONCHITIS [None]
  - CERVICAL MYELOPATHY [None]
  - CERVICOBRACHIAL SYNDROME [None]
  - DIZZINESS [None]
  - FUNGAL INFECTION [None]
  - GROIN PAIN [None]
  - HEADACHE [None]
  - HYPERTENSION [None]
  - ISCHAEMIC STROKE [None]
  - MUSCULOSKELETAL CHEST PAIN [None]
  - OTITIS MEDIA [None]
  - SINUSITIS [None]
  - SLEEP APNOEA SYNDROME [None]
  - SOMNOLENCE [None]
  - VISION BLURRED [None]
